FAERS Safety Report 8711158 (Version 2)
Quarter: 2013Q4

REPORT INFORMATION
  Report Type: Spontaneous
  Country: US (occurrence: US)
  Receive Date: 20120807
  Receipt Date: 20131029
  Transmission Date: 20140711
  Serious: Yes (Hospitalization, Other)
  Sender: FDA-Public Use
  Company Number: US-PFIZER INC-2012189219

PATIENT
  Age: 27 Year
  Sex: Female

DRUGS (3)
  1. VERAPAMIL HCL [Suspect]
     Indication: VASOSPASM
     Dosage: 20 MG (2.5MG/ML SOLUTION), UNK
     Route: 013
  2. ASPIRIN [Concomitant]
     Indication: ANTIPLATELET THERAPY
     Dosage: 325 MG, UNK
  3. CLOPIDOGREL [Concomitant]
     Indication: ANTIPLATELET THERAPY
     Dosage: 75MG, UNK

REACTIONS (4)
  - Headache [Recovered/Resolved]
  - Agitation [Recovered/Resolved]
  - Clonic convulsion [Recovered/Resolved]
  - Grand mal convulsion [Recovered/Resolved]
